FAERS Safety Report 16365250 (Version 1)
Quarter: 2019Q2

REPORT INFORMATION
  Report Type: Spontaneous
  Country: US (occurrence: US)
  Receive Date: 20190529
  Receipt Date: 20190529
  Transmission Date: 20190711
  Serious: Yes (Hospitalization)
  Sender: FDA-Public Use
  Company Number: US-ULTRAGENYX PHARMACEUTICAL INC.-US-UGNX-19-00079

PATIENT
  Sex: Male
  Weight: 47.22 kg

DRUGS (1)
  1. MEPSEVII [Suspect]
     Active Substance: VESTRONIDASE ALFA-VJBK
     Indication: MUCOPOLYSACCHARIDOSIS VII
     Dosage: 10MG/5ML
     Route: 042
     Dates: start: 20181212

REACTIONS (2)
  - Respiratory failure [Unknown]
  - Choking [Unknown]
